FAERS Safety Report 15226875 (Version 1)
Quarter: 2018Q3

REPORT INFORMATION
  Report Type: Spontaneous
  Country: US (occurrence: US)
  Receive Date: 20180706
  Receipt Date: 20180706
  Transmission Date: 20181010
  Serious: Yes (Hospitalization)
  Sender: FDA-Public Use
  Company Number: None

PATIENT
  Sex: Male

DRUGS (12)
  1. DEPAKOTE [Concomitant]
     Active Substance: DIVALPROEX SODIUM
  2. SYNTHROID [Concomitant]
     Active Substance: LEVOTHYROXINE SODIUM
  3. SEROQUEL [Concomitant]
     Active Substance: QUETIAPINE FUMARATE
  4. HYDROCODONE/ACETAMINOPHEN [Concomitant]
     Active Substance: ACETAMINOPHEN\HYDROCODONE
  5. TRAZODONE [Concomitant]
     Active Substance: TRAZODONE HYDROCHLORIDE
  6. AMBIEN [Concomitant]
     Active Substance: ZOLPIDEM TARTRATE
  7. CELEBREX [Concomitant]
     Active Substance: CELECOXIB
  8. LORATADINE. [Concomitant]
     Active Substance: LORATADINE
  9. SULFAMETHOXAZOLE AND TRIMETHOPRIM [Suspect]
     Active Substance: SULFAMETHOXAZOLE\TRIMETHOPRIM
     Indication: URINARY TRACT INFECTION
     Dates: start: 20180630, end: 20180702
  10. CYMBALTA [Concomitant]
     Active Substance: DULOXETINE HYDROCHLORIDE
  11. NICOTINE GUM AND PATCHES [Concomitant]
  12. ATIVAN [Concomitant]
     Active Substance: LORAZEPAM

REACTIONS (6)
  - Urticaria [None]
  - Rash [None]
  - Blood urine present [None]
  - Dysuria [None]
  - Genital swelling [None]
  - Skin exfoliation [None]

NARRATIVE: CASE EVENT DATE: 20180701
